FAERS Safety Report 13953716 (Version 2)
Quarter: 2017Q3

REPORT INFORMATION
  Report Type: Spontaneous
  Country: US (occurrence: US)
  Receive Date: 20170911
  Receipt Date: 20170913
  Transmission Date: 20171128
  Serious: No
  Sender: FDA-Public Use
  Company Number: US-PFIZER INC-2017392535

PATIENT
  Sex: Male

DRUGS (4)
  1. SUBOXONE [Concomitant]
     Active Substance: BUPRENORPHINE HYDROCHLORIDE\NALOXONE HYDROCHLORIDE
     Dosage: UNK
  2. NEURONTIN [Suspect]
     Active Substance: GABAPENTIN
     Indication: NERVOUSNESS
     Dosage: UNK
     Dates: start: 2017
  3. NEURONTIN [Suspect]
     Active Substance: GABAPENTIN
     Indication: HYPERTENSION
  4. XANAX [Concomitant]
     Active Substance: ALPRAZOLAM
     Dosage: 10 MG, UNK

REACTIONS (5)
  - Intentional product use issue [Unknown]
  - Abdominal discomfort [Unknown]
  - Neuralgia [Unknown]
  - Chest discomfort [Unknown]
  - Product use in unapproved indication [Unknown]
